FAERS Safety Report 4376142-6 (Version None)
Quarter: 2004Q2

REPORT INFORMATION
  Report Type: 
  Country: None (occurrence: None)
  Receive Date: 20040607
  Receipt Date: 20040527
  Transmission Date: 20050107
  Serious: Yes (Hospitalization)
  Sender: FDA-Public Use
  Company Number: 2004035867

PATIENT
  Age: 84 Year
  Sex: Female

DRUGS (10)
  1. FLUCONAZOLE [Suspect]
     Indication: ILL-DEFINED DISORDER
     Dosage: 50 MG (50 MG, DAILY), ORAL
     Route: 048
     Dates: start: 20040508, end: 20040510
  2. WARFARIN SODIUM [Suspect]
     Indication: ATRIAL FIBRILLATION
     Dosage: ORAL
     Route: 048
  3. DIGOXIN [Concomitant]
  4. NITRAZEPAM [Concomitant]
  5. SENNA (SENNA) [Concomitant]
  6. MAGNESIUM HYDROXIDE (MAGNESIUM HYDROXIDE) [Concomitant]
  7. ACETAMINOPHEN [Concomitant]
  8. CEFUROXIME [Concomitant]
  9. CLARITHROMYCIN [Concomitant]
  10. TRIMETHOPRIM [Concomitant]

REACTIONS (1)
  - INTERNATIONAL NORMALISED RATIO INCREASED [None]
